FAERS Safety Report 7573915-3 (Version None)
Quarter: 2011Q2

REPORT INFORMATION
  Report Type: 
  Country: None (occurrence: None)
  Receive Date: 20110627
  Receipt Date: 20110614
  Transmission Date: 20111010
  Serious: Yes (Hospitalization)
  Sender: FDA-Public Use
  Company Number: B0728019A

PATIENT
  Sex: Female

DRUGS (5)
  1. LAPATINIB [Suspect]
     Dosage: 1500MG PER DAY
     Route: 048
     Dates: start: 20090303
  2. CYMBALTA [Concomitant]
     Indication: PAIN
     Dates: start: 20110522
  3. DOCETAXEL [Suspect]
     Dosage: 75MGM2 EVERY 3 WEEKS
     Route: 042
  4. ESCITALOPRAM [Concomitant]
     Indication: ANXIETY
     Dates: start: 20080101
  5. PACLITAXEL [Suspect]
     Dosage: 90MGM2 WEEKLY
     Route: 042

REACTIONS (2)
  - CELLULITIS [None]
  - HERPES ZOSTER [None]
